FAERS Safety Report 12586953 (Version 1)
Quarter: 2016Q3

REPORT INFORMATION
  Report Type: Spontaneous
  Country: US (occurrence: None)
  Receive Date: 20160722
  Receipt Date: 20160722
  Transmission Date: 20161109
  Serious: Yes (Hospitalization)
  Sender: FDA-Public Use
  Company Number: None

PATIENT
  Age: 10 Year
  Sex: Male
  Weight: 46.1 kg

DRUGS (6)
  1. PREDNISONE. [Suspect]
     Active Substance: PREDNISONE
     Dates: end: 20160630
  2. DAUNORUBICIN [Suspect]
     Active Substance: DAUNORUBICIN
     Dates: end: 20160624
  3. CYTARABINE. [Suspect]
     Active Substance: CYTARABINE
     Dates: end: 20160610
  4. METHOTREXATE. [Suspect]
     Active Substance: METHOTREXATE
     Dates: end: 20160617
  5. VINCRISTINE SULFATE. [Suspect]
     Active Substance: VINCRISTINE SULFATE
     Dates: end: 20160624
  6. ONCASPAR [Suspect]
     Active Substance: PEGASPARGASE
     Dosage: 3397.5 UNIT
     Dates: end: 20160613

REACTIONS (3)
  - Transaminases increased [None]
  - Cholestasis [None]
  - Hyperbilirubinaemia [None]

NARRATIVE: CASE EVENT DATE: 20160701
